FAERS Safety Report 10437816 (Version 1)
Quarter: 2014Q3

REPORT INFORMATION
  Report Type: Spontaneous
  Country: JP (occurrence: JP)
  Receive Date: 20140908
  Receipt Date: 20140908
  Transmission Date: 20150326
  Serious: Yes (Other)
  Sender: FDA-Public Use
  Company Number: JP-GILEAD-2014-0114175

PATIENT
  Age: 68 Year
  Sex: Male

DRUGS (1)
  1. HEPSERA [Suspect]
     Active Substance: ADEFOVIR DIPIVOXIL
     Indication: CHRONIC HEPATITIS B
     Route: 048

REACTIONS (10)
  - Acquired aminoaciduria [Unknown]
  - Renal glycosuria [Unknown]
  - Fanconi syndrome acquired [Unknown]
  - Gait disturbance [Unknown]
  - Hypophosphataemia [Unknown]
  - Osteomalacia [Unknown]
  - Renal disorder [Unknown]
  - Myositis [Recovering/Resolving]
  - Myopathy [Unknown]
  - Pathological fracture [Unknown]
